FAERS Safety Report 15854368 (Version 1)
Quarter: 2019Q1

REPORT INFORMATION
  Report Type: Spontaneous
  Country: US (occurrence: US)
  Receive Date: 20190122
  Receipt Date: 20190122
  Transmission Date: 20190417
  Serious: Yes (Life-Threatening, Other)
  Sender: FDA-Public Use
  Company Number: None

PATIENT
  Age: 20 Year
  Sex: Female
  Weight: 63 kg

DRUGS (2)
  1. CYMBALTA [Suspect]
     Active Substance: DULOXETINE HYDROCHLORIDE
     Indication: ANXIETY
     Route: 048
     Dates: start: 20150415, end: 20190120
  2. WOMEN^S MULTI-VITAMIN [Concomitant]

REACTIONS (13)
  - Intentional self-injury [None]
  - Nausea [None]
  - Weight decreased [None]
  - Fear [None]
  - Anxiety [None]
  - Diarrhoea [None]
  - Ataxia [None]
  - Fatigue [None]
  - Paraesthesia [None]
  - Crying [None]
  - Suicidal ideation [None]
  - Withdrawal syndrome [None]
  - Panic attack [None]

NARRATIVE: CASE EVENT DATE: 20190110
